FAERS Safety Report 9393237 (Version 2)
Quarter: 2013Q3

REPORT INFORMATION
  Report Type: Spontaneous
  Country: US (occurrence: US)
  Receive Date: 20130710
  Receipt Date: 20130729
  Transmission Date: 20140515
  Serious: No
  Sender: FDA-Public Use
  Company Number: US-PFIZER INC-2013202386

PATIENT
  Age: 66 Year
  Sex: Female
  Weight: 68.03 kg

DRUGS (3)
  1. EFFEXOR XR [Suspect]
     Indication: DEPRESSION
     Dosage: 150 MG, 2X/DAY
     Route: 048
  2. AMITRIPTYLINE [Suspect]
     Indication: DEPRESSION
     Dosage: 50 MG, DAILY AT NIGHT
     Dates: start: 201306
  3. XANAX [Concomitant]
     Indication: ANXIETY
     Dosage: 1 MG, 3X/DAY
     Route: 048

REACTIONS (5)
  - Drug ineffective [Unknown]
  - Sleep disorder [Not Recovered/Not Resolved]
  - Somnolence [Not Recovered/Not Resolved]
  - Screaming [Not Recovered/Not Resolved]
  - Anger [Not Recovered/Not Resolved]
